FAERS Safety Report 12422733 (Version 1)
Quarter: 2016Q2

REPORT INFORMATION
  Report Type: Spontaneous
  Country: RU (occurrence: RU)
  Receive Date: 20160601
  Receipt Date: 20160601
  Transmission Date: 20160815
  Serious: Yes (Death, Other)
  Sender: FDA-Public Use
  Company Number: RU-ASTRAZENECA-2016SE57024

PATIENT
  Age: 56 Year
  Sex: Male

DRUGS (29)
  1. DOPAMINE [Concomitant]
     Active Substance: DOPAMINE\DOPAMINE HYDROCHLORIDE
     Indication: ELECTROCARDIOGRAM ST SEGMENT ELEVATION
     Route: 041
     Dates: start: 20160320, end: 20160323
  2. ATORVASTATIN [Concomitant]
     Active Substance: ATORVASTATIN
     Indication: ELECTROCARDIOGRAM ST SEGMENT ELEVATION
     Route: 048
     Dates: start: 20160311, end: 20160330
  3. EGILOK [Concomitant]
     Active Substance: METOPROLOL TARTRATE
     Indication: CARDIAC DISORDER
     Route: 048
     Dates: start: 20160311, end: 20160317
  4. CORDARONE [Concomitant]
     Active Substance: AMIODARONE HYDROCHLORIDE
     Indication: ELECTROCARDIOGRAM ST SEGMENT ELEVATION
     Route: 048
     Dates: start: 20160319, end: 20160330
  5. VEROSPIRON [Concomitant]
     Active Substance: SPIRONOLACTONE
     Indication: ELECTROCARDIOGRAM ST SEGMENT ELEVATION
     Route: 048
     Dates: start: 20160327, end: 20160330
  6. SALINE SOLUTION [Concomitant]
     Active Substance: SODIUM CHLORIDE
     Indication: CARDIAC DISORDER
     Dosage: 500 UNKNOWN DAILY
     Route: 041
     Dates: start: 20160320, end: 20160329
  7. SALINE SOLUTION [Concomitant]
     Active Substance: SODIUM CHLORIDE
     Indication: ELECTROCARDIOGRAM ST SEGMENT ELEVATION
     Dosage: 500 UNKNOWN DAILY
     Route: 041
     Dates: start: 20160320, end: 20160329
  8. FENTANYL. [Concomitant]
     Active Substance: FENTANYL
     Indication: CARDIAC DISORDER
     Dosage: 0.005 DAILY
     Route: 040
     Dates: start: 20160320, end: 20160320
  9. PLAVYX [Concomitant]
     Indication: CARDIAC DISORDER
     Route: 048
     Dates: start: 20160311, end: 20160319
  10. CARDIASK [Concomitant]
     Active Substance: ASPIRIN
     Indication: CARDIAC DISORDER
     Route: 048
     Dates: start: 20160317, end: 20160330
  11. BRILINTA [Suspect]
     Active Substance: TICAGRELOR
     Indication: ACUTE CORONARY SYNDROME
     Route: 048
     Dates: start: 20160320, end: 20160330
  12. FUROSEMIDE. [Concomitant]
     Active Substance: FUROSEMIDE
     Indication: CARDIAC DISORDER
     Route: 048
     Dates: start: 20160324, end: 20160330
  13. OMEZ [Concomitant]
     Active Substance: OMEPRAZOLE
     Indication: CARDIAC DISORDER
     Route: 048
     Dates: start: 20160311, end: 20160330
  14. CORDARONE [Concomitant]
     Active Substance: AMIODARONE HYDROCHLORIDE
     Indication: CARDIAC DISORDER
     Route: 048
     Dates: start: 20160319, end: 20160330
  15. FUROSEMIDE. [Concomitant]
     Active Substance: FUROSEMIDE
     Indication: ELECTROCARDIOGRAM ST SEGMENT ELEVATION
     Route: 048
     Dates: start: 20160324, end: 20160330
  16. DOPAMINE [Concomitant]
     Active Substance: DOPAMINE\DOPAMINE HYDROCHLORIDE
     Indication: ELECTROCARDIOGRAM ST SEGMENT ELEVATION
     Route: 041
     Dates: start: 20160330, end: 20160330
  17. FENTANYL. [Concomitant]
     Active Substance: FENTANYL
     Indication: ELECTROCARDIOGRAM ST SEGMENT ELEVATION
     Dosage: 0.005 DAILY
     Route: 040
     Dates: start: 20160320, end: 20160320
  18. HEPARIN [Concomitant]
     Active Substance: HEPARIN SODIUM
     Indication: ELECTROCARDIOGRAM ST SEGMENT ELEVATION
     Route: 041
     Dates: start: 20160320, end: 20160322
  19. DOPAMINE [Concomitant]
     Active Substance: DOPAMINE\DOPAMINE HYDROCHLORIDE
     Indication: CARDIAC DISORDER
     Route: 041
     Dates: start: 20160330, end: 20160330
  20. CYANOCOBALAMINE [Concomitant]
     Active Substance: CYANOCOBALAMIN
     Indication: ANAEMIA
     Dosage: 500.0MG UNKNOWN
     Route: 030
     Dates: start: 20160317, end: 20160330
  21. OMEZ [Concomitant]
     Active Substance: OMEPRAZOLE
     Indication: ELECTROCARDIOGRAM ST SEGMENT ELEVATION
     Route: 048
     Dates: start: 20160311, end: 20160330
  22. PLAVYX [Concomitant]
     Indication: ELECTROCARDIOGRAM ST SEGMENT ELEVATION
     Route: 048
     Dates: start: 20160311, end: 20160319
  23. HEPARIN [Concomitant]
     Active Substance: HEPARIN SODIUM
     Indication: CARDIAC DISORDER
     Route: 041
     Dates: start: 20160320, end: 20160322
  24. DOPAMINE [Concomitant]
     Active Substance: DOPAMINE\DOPAMINE HYDROCHLORIDE
     Indication: CARDIAC DISORDER
     Route: 041
     Dates: start: 20160320, end: 20160323
  25. VEROSPIRON [Concomitant]
     Active Substance: SPIRONOLACTONE
     Indication: CARDIAC DISORDER
     Route: 048
     Dates: start: 20160327, end: 20160330
  26. ATORVASTATIN [Concomitant]
     Active Substance: ATORVASTATIN
     Indication: CARDIAC DISORDER
     Route: 048
     Dates: start: 20160311, end: 20160330
  27. EGILOK [Concomitant]
     Active Substance: METOPROLOL TARTRATE
     Indication: ELECTROCARDIOGRAM ST SEGMENT ELEVATION
     Route: 048
     Dates: start: 20160311, end: 20160317
  28. CARDIASK [Concomitant]
     Active Substance: ASPIRIN
     Indication: ELECTROCARDIOGRAM ST SEGMENT ELEVATION
     Route: 048
     Dates: start: 20160317, end: 20160330
  29. FOLIC ACID. [Concomitant]
     Active Substance: FOLIC ACID
     Indication: ANAEMIA
     Route: 048
     Dates: start: 20160324, end: 20160330

REACTIONS (3)
  - Cardiogenic shock [Unknown]
  - Cardiac failure acute [Fatal]
  - Lung neoplasm malignant [Unknown]

NARRATIVE: CASE EVENT DATE: 20160320
